FAERS Safety Report 9976381 (Version 1)
Quarter: 2014Q1

REPORT INFORMATION
  Report Type: Report from Study
  Country: US (occurrence: US)
  Receive Date: 20140306
  Receipt Date: 20140306
  Transmission Date: 20141002
  Serious: No
  Sender: FDA-Public Use
  Company Number: US-ABBVIE-13P-163-1163589-00

PATIENT
  Sex: Female

DRUGS (21)
  1. PAXIL [Concomitant]
     Indication: ANXIETY
     Dosage: NEUROPATHY IN FEET WHICH GOT FROM FLAGYL
  2. PAXIL [Concomitant]
     Indication: NEUROPATHY PERIPHERAL
  3. TEMAZEPAM [Concomitant]
     Indication: ANXIETY
  4. TEMAZEPAM [Concomitant]
     Indication: INSOMNIA
  5. HYDRATION SALTS [Concomitant]
     Indication: PRODUCT USED FOR UNKNOWN INDICATION
  6. LIQUID MULTI-VITAMIN [Concomitant]
     Indication: PRODUCT USED FOR UNKNOWN INDICATION
     Dosage: ONE TABLESPOON DAILY
  7. AL ACID [Concomitant]
     Indication: PRODUCT USED FOR UNKNOWN INDICATION
     Dosage: 400MG DAILY
  8. ACETYL [Concomitant]
     Indication: PRODUCT USED FOR UNKNOWN INDICATION
     Dosage: NAC; 2000MG DAILY
  9. LYSINE [Concomitant]
     Indication: PRODUCT USED FOR UNKNOWN INDICATION
     Dosage: 1000MG DAILY
  10. B-12 [Concomitant]
     Indication: PRODUCT USED FOR UNKNOWN INDICATION
  11. B-12 [Concomitant]
     Indication: PRODUCT USED FOR UNKNOWN INDICATION
     Dosage: SHOT NOW AND THEN
  12. FISH OIL [Concomitant]
     Indication: PRODUCT USED FOR UNKNOWN INDICATION
     Dosage: 2 TBSP DAILY
  13. GLUTAMINE [Concomitant]
     Indication: PRODUCT USED FOR UNKNOWN INDICATION
     Dosage: 1000MG DAILY
  14. IRON [Concomitant]
     Indication: PRODUCT USED FOR UNKNOWN INDICATION
     Dosage: 50MG DAILY
  15. MAGNESIUM [Concomitant]
     Indication: PRODUCT USED FOR UNKNOWN INDICATION
     Dosage: 1200MG DAILY
  16. VITAMIN A [Concomitant]
     Indication: PRODUCT USED FOR UNKNOWN INDICATION
     Dosage: 20,000 IU DAILY
  17. VITAMIN C [Concomitant]
     Indication: PRODUCT USED FOR UNKNOWN INDICATION
     Dosage: 1000MG DAILY
  18. D3 [Concomitant]
     Indication: PRODUCT USED FOR UNKNOWN INDICATION
     Dosage: 100,000 IU DAILY
  19. VITAMIN K [Concomitant]
     Indication: PRODUCT USED FOR UNKNOWN INDICATION
     Dosage: 100MCG DAILY
  20. HUMIRA [Suspect]
     Indication: CROHN^S DISEASE
     Dates: start: 20130901
  21. HYDRALAZINE [Concomitant]
     Indication: HEART RATE DECREASED

REACTIONS (3)
  - Pain [Not Recovered/Not Resolved]
  - Injection site haemorrhage [Unknown]
  - Injection site bruising [Unknown]
